FAERS Safety Report 16122181 (Version 21)
Quarter: 2023Q2

REPORT INFORMATION
  Report Type: Other
  Country: BR (occurrence: BR)
  Receive Date: 20190327
  Receipt Date: 20230614
  Transmission Date: 20230722
  Serious: Yes (Other)
  Sender: FDA-Public Use
  Company Number: BR-ROCHE-2270896

PATIENT
  Age: 48 Year
  Sex: Female
  Weight: 52 kg

DRUGS (19)
  1. RIVOTRIL [Suspect]
     Active Substance: CLONAZEPAM
     Indication: Somnolence
     Route: 065
  2. OCREVUS [Suspect]
     Active Substance: OCRELIZUMAB
     Indication: Multiple sclerosis
     Dosage: SECOND INFUSION: 06/MAR/2019
     Route: 042
     Dates: start: 20190219
  3. BROMAZEPAM [Suspect]
     Active Substance: BROMAZEPAM
     Indication: Depression
     Route: 065
  4. CORTISONE [Suspect]
     Active Substance: CORTISONE
     Indication: Product used for unknown indication
     Route: 065
  5. METICORTEN [Suspect]
     Active Substance: PREDNISONE
     Indication: Hemiplegia
     Dosage: CONTINUED TO USE METICORTEN 3 TABLETS 20 MG/DAILY FOR 5 DAYS, THEN SHE DECREASED IT TO 2 TABLETS FOR
     Route: 065
  6. METICORTEN [Suspect]
     Active Substance: PREDNISONE
     Dosage: CONTINUED TO USE METICORTEN 3 TABLETS 20 MG/DAILY FOR 5 DAYS
     Route: 065
  7. METICORTEN [Suspect]
     Active Substance: PREDNISONE
     Dosage: 2 TABLETS FOR 2 DAYS
     Route: 065
  8. METICORTEN [Suspect]
     Active Substance: PREDNISONE
     Dosage: 1 TABLET
     Route: 065
  9. METICORTEN [Suspect]
     Active Substance: PREDNISONE
     Dosage: HALF TABLET.
     Route: 065
  10. BACTRIM [Suspect]
     Active Substance: SULFAMETHOXAZOLE\TRIMETHOPRIM
     Indication: Escherichia urinary tract infection
     Route: 065
  11. PRIMID [Concomitant]
     Indication: Tremor
  12. PREGABALIN [Concomitant]
     Active Substance: PREGABALIN
     Indication: Arthralgia
  13. LEXAPRO [Concomitant]
     Active Substance: ESCITALOPRAM OXALATE
     Indication: Anxiety
  14. ACETAMINOPHEN [Concomitant]
     Active Substance: ACETAMINOPHEN
  15. CALCIUM PANTOTHENATE\CYANOCOBALAMIN\NIACINAMIDE\PYRIDOXINE HYDROCHLORI [Concomitant]
     Active Substance: CALCIUM PANTOTHENATE\CYANOCOBALAMIN\NIACINAMIDE\PYRIDOXINE HYDROCHLORIDE\RIBOFLAVIN\THIAMINE MONONIT
  16. ESCITALOPRAM OXALATE [Concomitant]
     Active Substance: ESCITALOPRAM OXALATE
  17. VITAMIN C [Concomitant]
     Active Substance: ASCORBIC ACID
  18. FLUOXETINE [Concomitant]
     Active Substance: FLUOXETINE HYDROCHLORIDE
     Indication: Anxiety
     Dosage: ADMINISTRATION IN THE AFTERNOON
  19. IVERMECTIN [Concomitant]
     Active Substance: IVERMECTIN

REACTIONS (29)
  - Neurogenic bladder [Recovered/Resolved]
  - Urinary tract infection [Recovered/Resolved]
  - Influenza [Recovered/Resolved]
  - Hemiplegia [Recovered/Resolved]
  - Multiple sclerosis pseudo relapse [Recovered/Resolved]
  - Muscle spasms [Recovered/Resolved]
  - Fatigue [Recovered/Resolved]
  - Headache [Recovered/Resolved]
  - White blood cell count decreased [Recovered/Resolved]
  - Candida infection [Recovered/Resolved]
  - Balance disorder [Unknown]
  - Hypoaesthesia [Recovered/Resolved]
  - Reflexes abnormal [Recovered/Resolved]
  - Discomfort [Recovered/Resolved]
  - Escherichia urinary tract infection [Recovered/Resolved]
  - Hemiparaesthesia [Unknown]
  - Sensory loss [Unknown]
  - Musculoskeletal stiffness [Unknown]
  - Hemiplegia [Unknown]
  - Sensory loss [Recovered/Resolved]
  - Balance disorder [Recovered/Resolved]
  - Urinary tract infection [Unknown]
  - Alanine aminotransferase abnormal [Recovered/Resolved]
  - Aspartate aminotransferase abnormal [Recovered/Resolved]
  - Multiple sclerosis [Recovered/Resolved]
  - Dizziness [Recovered/Resolved]
  - Gait disturbance [Recovered/Resolved]
  - Decreased immune responsiveness [Recovering/Resolving]
  - Off label use [Unknown]

NARRATIVE: CASE EVENT DATE: 20190219
